FAERS Safety Report 6542995-6 (Version None)
Quarter: 2010Q1

REPORT INFORMATION
  Report Type: 
  Country: None (occurrence: None)
  Receive Date: 20100120
  Receipt Date: 20100111
  Transmission Date: 20100710
  Serious: Yes (Hospitalization)
  Sender: FDA-Public Use
  Company Number: US-ROCHE-678958

PATIENT
  Sex: Female

DRUGS (2)
  1. XELODA [Suspect]
     Indication: DRUG USE FOR UNKNOWN INDICATION
     Dosage: TWO WEEKS ON AND ONE WEEK OFF
     Route: 065
     Dates: end: 20091214
  2. TYKERB [Suspect]
     Indication: DRUG USE FOR UNKNOWN INDICATION
     Dosage: THREE WEEKS ON AND ONE WEEK OFF; 5 TABLETS DAILY
     Route: 048
     Dates: start: 20091129, end: 20091214

REACTIONS (6)
  - ABDOMINAL PAIN UPPER [None]
  - AMMONIA INCREASED [None]
  - BLOOD POTASSIUM DECREASED [None]
  - COMA [None]
  - DIARRHOEA [None]
  - HOT FLUSH [None]
